FAERS Safety Report 11461683 (Version 1)
Quarter: 2015Q3

REPORT INFORMATION
  Report Type: Spontaneous
  Country: US (occurrence: US)
  Receive Date: 20150831
  Receipt Date: 20150831
  Transmission Date: 20151125
  Serious: No
  Sender: FDA-Public Use
  Company Number: US-ELI_LILLY_AND_COMPANY-US200908005045

PATIENT
  Age: 9 Year
  Sex: Male

DRUGS (4)
  1. CYMBALTA [Suspect]
     Active Substance: DULOXETINE HYDROCHLORIDE
     Indication: ANXIETY
     Dosage: 20 MG, DAILY (1/D)
     Dates: start: 200811
  2. CLARITIN [Concomitant]
     Active Substance: LORATADINE
  3. CYMBALTA [Suspect]
     Active Substance: DULOXETINE HYDROCHLORIDE
     Dosage: 10 MG, DAILY (1/D)
  4. RHINOCORT [Concomitant]
     Active Substance: BUDESONIDE

REACTIONS (9)
  - Intentional product misuse [Unknown]
  - Diarrhoea [Recovered/Resolved]
  - Depressed mood [Recovered/Resolved]
  - Drug withdrawal syndrome [Recovered/Resolved]
  - Anxiety [Recovered/Resolved]
  - Off label use [Not Recovered/Not Resolved]
  - Agitation [Recovered/Resolved]
  - Feeling abnormal [Recovered/Resolved]
  - Tinnitus [Recovered/Resolved]
